FAERS Safety Report 17133178 (Version 3)
Quarter: 2019Q4

REPORT INFORMATION
  Report Type: Spontaneous
  Country: ID (occurrence: ID)
  Receive Date: 20191210
  Receipt Date: 20191227
  Transmission Date: 20200122
  Serious: Yes (Hospitalization)
  Sender: FDA-Public Use
  Company Number: ID-ROCHE-2491250

PATIENT
  Sex: Male

DRUGS (3)
  1. TECENTRIQ [Suspect]
     Active Substance: ATEZOLIZUMAB
     Indication: PRODUCT USED FOR UNKNOWN INDICATION
     Dosage: LAST DOSE OF ATEZOLIZUMAB: 17/DEC/2019
     Route: 065
     Dates: start: 20191105
  2. NEBILET [Suspect]
     Active Substance: NEBIVOLOL
     Indication: ARRHYTHMIA
     Dosage: 1X1 TABLET
     Route: 065
  3. RYTMONORM [Suspect]
     Active Substance: PROPAFENONE
     Indication: ARRHYTHMIA
     Dosage: 2X1 TABLET
     Route: 065

REACTIONS (2)
  - Arrhythmia [Unknown]
  - Bradycardia [Unknown]
